FAERS Safety Report 17359531 (Version 8)
Quarter: 2021Q3

REPORT INFORMATION
  Report Type: Report from Study
  Country: US (occurrence: US)
  Receive Date: 20200203
  Receipt Date: 20210923
  Transmission Date: 20211014
  Serious: Yes (Death, Hospitalization, Other)
  Sender: FDA-Public Use
  Company Number: US-BRISTOL-MYERS SQUIBB COMPANY-BMS-2020-006734

PATIENT
  Age: 64 Year
  Sex: Female
  Weight: 65.3 kg

DRUGS (16)
  1. COZAAR [Concomitant]
     Active Substance: LOSARTAN POTASSIUM
     Indication: HYPERTENSION
     Dosage: 100 MILLIGRAM, QD
     Route: 048
     Dates: start: 2005, end: 20200205
  2. LIPITOR [Concomitant]
     Active Substance: ATORVASTATIN CALCIUM
     Indication: BLOOD CHOLESTEROL
     Dosage: 80 MILLIGRAM, QD
     Route: 048
     Dates: start: 2013
  3. TYLENOL [Concomitant]
     Active Substance: ACETAMINOPHEN
     Indication: PAIN
     Dosage: 1000 MILLIGRAM, PRN
     Route: 048
  4. COLACE [Concomitant]
     Active Substance: DOCUSATE SODIUM
     Indication: CONSTIPATION
     Dosage: AS DIR, ONCE DAILY/TWICE DAILY
     Route: 048
  5. HCTZ [Concomitant]
     Active Substance: HYDROCHLOROTHIAZIDE
     Indication: HYPERTENSION
     Dosage: 12.5 MILLIGRAM, QD
     Route: 048
     Dates: start: 2018, end: 20200205
  6. RISEDRONATE [Concomitant]
     Active Substance: RISEDRONATE SODIUM
     Indication: SUPPLEMENTATION THERAPY
     Dosage: 150 MILLIGRAM, QD
     Route: 048
     Dates: start: 2015
  7. NORVASC [Concomitant]
     Active Substance: AMLODIPINE BESYLATE
     Indication: HYPERTENSION
     Dosage: 10 MILLIGRAM, QD
     Route: 048
     Dates: start: 2005, end: 20200205
  8. COMPAZINE [Concomitant]
     Active Substance: PROCHLORPERAZINE MALEATE
     Indication: NAUSEA
     Dosage: 10 MILLIGRAM, PRN
     Route: 048
     Dates: start: 20200106
  9. ORAGEL [FENTICLOR] [Concomitant]
     Indication: STOMATITIS
     Dosage: AR DIRECTED, PRN
     Route: 061
     Dates: start: 20200115
  10. GEMCITABINE HYDROCHLORIDE. [Suspect]
     Active Substance: GEMCITABINE HYDROCHLORIDE
     Indication: TRANSITIONAL CELL CANCER OF RENAL PELVIS AND URETER METASTATIC
     Dosage: 1670 MILLIGRAM, DAY 1, 6, 21 DAY CYCLE
     Route: 042
     Dates: start: 20200106, end: 20200212
  11. GLUCOPHAGE [Concomitant]
     Active Substance: METFORMIN HYDROCHLORIDE
     Indication: DIABETES MELLITUS
     Dosage: 1000 MILLIGRAM
     Route: 048
     Dates: start: 2007, end: 20200205
  12. OXALIPLATIN. [Suspect]
     Active Substance: OXALIPLATIN
     Indication: TRANSITIONAL CELL CANCER OF RENAL PELVIS AND URETER METASTATIC
     Dosage: 215 MILLIGRAM, Q3WK
     Route: 042
     Dates: start: 20200106, end: 20200205
  13. NIVOLUMAB [Suspect]
     Active Substance: NIVOLUMAB
     Indication: TRANSITIONAL CELL CANCER OF RENAL PELVIS AND URETER METASTATIC
     Dosage: 360 MILLIGRAM, Q3WK
     Route: 042
     Dates: start: 20200106, end: 20200205
  14. TOPROL XL [Concomitant]
     Active Substance: METOPROLOL SUCCINATE
     Indication: HYPERTENSION
     Dosage: 100 MILLIGRAM, QD
     Route: 048
     Dates: start: 2005, end: 20200205
  15. ZOFRAN [Concomitant]
     Active Substance: ONDANSETRON HYDROCHLORIDE
     Indication: NAUSEA
     Dosage: AS DIRECTED, PRN
     Route: 048
     Dates: start: 20200106
  16. PRILOSEC [Concomitant]
     Active Substance: OMEPRAZOLE MAGNESIUM
     Indication: GASTROOESOPHAGEAL REFLUX DISEASE
     Dosage: 20 MILLIGRAM, QD
     Route: 048
     Dates: start: 2017

REACTIONS (6)
  - Hyperglycaemia [Recovered/Resolved with Sequelae]
  - Liver injury [Unknown]
  - Platelet count decreased [Recovered/Resolved with Sequelae]
  - Immune-mediated hepatitis [Recovering/Resolving]
  - Death [Fatal]
  - Urinary tract infection enterococcal [Recovered/Resolved]

NARRATIVE: CASE EVENT DATE: 20200124
